FAERS Safety Report 6584318-2 (Version None)
Quarter: 2010Q1

REPORT INFORMATION
  Report Type: 
  Country: None (occurrence: None)
  Receive Date: 20100216
  Receipt Date: 20100204
  Transmission Date: 20100710
  Serious: No
  Sender: FDA-Public Use
  Company Number: US-ABBOTT-10P-163-0624260-00

PATIENT
  Sex: Female

DRUGS (3)
  1. SIMCOR [Suspect]
     Indication: BLOOD TRIGLYCERIDES INCREASED
     Dates: start: 20100101
  2. ASPIRIN [Concomitant]
     Indication: DRUG USE FOR UNKNOWN INDICATION
  3. TRICOR [Concomitant]
     Indication: DRUG USE FOR UNKNOWN INDICATION

REACTIONS (1)
  - PRURITUS [None]
